FAERS Safety Report 13669025 (Version 1)
Quarter: 2017Q2

REPORT INFORMATION
  Report Type: Spontaneous
  Country: US (occurrence: US)
  Receive Date: 20170620
  Receipt Date: 20170620
  Transmission Date: 20170830
  Serious: No
  Sender: FDA-Public Use
  Company Number: US-GLAXOSMITHKLINE-US2017091538

PATIENT
  Age: 63 Year
  Sex: Female

DRUGS (4)
  1. NUCALA [Suspect]
     Active Substance: MEPOLIZUMAB
     Indication: PRODUCT USED FOR UNKNOWN INDICATION
     Dosage: UNK
     Route: 042
     Dates: start: 20170515
  2. ALBUTEROL INHALATION POWDER [Concomitant]
     Active Substance: ALBUTEROL
  3. BREO ELLIPTA [Concomitant]
     Active Substance: FLUTICASONE FUROATE\VILANTEROL TRIFENATATE
  4. EPIPEN [Concomitant]
     Active Substance: EPINEPHRINE

REACTIONS (3)
  - Herpes zoster [Unknown]
  - Skin lesion [Unknown]
  - Skin burning sensation [Unknown]

NARRATIVE: CASE EVENT DATE: 20170611
